FAERS Safety Report 12821337 (Version 3)
Quarter: 2016Q4

REPORT INFORMATION
  Report Type: Spontaneous
  Country: FR (occurrence: FR)
  Receive Date: 20161006
  Receipt Date: 20161020
  Transmission Date: 20170207
  Serious: Yes (Hospitalization)
  Sender: FDA-Public Use
  Company Number: FR-UCBSA-2016038173

PATIENT
  Age: 86 Year
  Sex: Male

DRUGS (14)
  1. KEPPRA [Suspect]
     Active Substance: LEVETIRACETAM
     Indication: TRIGEMINAL NEURALGIA
     Dosage: 500 MG, ONCE DAILY (QD)
     Route: 042
     Dates: start: 20160622, end: 20160622
  2. TRILEPTAL [Suspect]
     Active Substance: OXCARBAZEPINE
     Dosage: 300 MG, ONCE DAILY (QD)
     Route: 048
     Dates: start: 20160622, end: 20160623
  3. LYRICA [Suspect]
     Active Substance: PREGABALIN
     Dosage: SOMETIMES 4/DAY
     Route: 048
  4. DOLIPRANE [Concomitant]
     Active Substance: ACETAMINOPHEN
     Indication: PRODUCT USED FOR UNKNOWN INDICATION
     Dosage: 1000 MG, ONCE DAILY (QD)
  5. TRILEPTAL [Suspect]
     Active Substance: OXCARBAZEPINE
     Indication: TRIGEMINAL NEURALGIA
     Dosage: 1 DF, 2X/DAY (BID) (150MG 2/DAY)
     Route: 048
     Dates: start: 20120101, end: 20160622
  6. TRILEPTAL [Suspect]
     Active Substance: OXCARBAZEPINE
     Dosage: SOMETIMES 300MG 2/DAY
     Route: 048
  7. LAMICTAL [Suspect]
     Active Substance: LAMOTRIGINE
     Dosage: 100MG SOMETIMES 4/DAY
     Route: 048
  8. RIVOTRIL [Suspect]
     Active Substance: CLONAZEPAM
     Indication: TRIGEMINAL NEURALGIA
     Dosage: 0.5 DF, ONCE DAILY (QD)
     Route: 042
     Dates: start: 20160622, end: 20160622
  9. KEPPRA [Suspect]
     Active Substance: LEVETIRACETAM
     Indication: OFF LABEL USE
  10. TEGRETOL [Suspect]
     Active Substance: CARBAMAZEPINE
     Indication: TRIGEMINAL NEURALGIA
     Dosage: 150 MG, 3X/DAY (TID)
     Route: 048
     Dates: start: 20160623, end: 20160704
  11. LAMICTAL [Suspect]
     Active Substance: LAMOTRIGINE
     Indication: TRIGEMINAL NEURALGIA
     Dosage: 100 MG, 2X/DAY (BID)
     Route: 048
     Dates: start: 20120101, end: 201606
  12. LAMICTAL [Suspect]
     Active Substance: LAMOTRIGINE
     Dosage: 300 MG, 3X/DAY (TID)
     Route: 048
     Dates: start: 201606, end: 2016
  13. LYRICA [Suspect]
     Active Substance: PREGABALIN
     Dosage: 200 MG, 3X/DAY (TID)
     Route: 048
     Dates: end: 20160623
  14. LYRICA [Suspect]
     Active Substance: PREGABALIN
     Indication: TRIGEMINAL NEURALGIA
     Dosage: 1 DF, 2X/DAY (BID)
     Route: 048
     Dates: start: 20120101

REACTIONS (4)
  - Hepatocellular injury [Recovering/Resolving]
  - Gamma-glutamyltransferase increased [Recovering/Resolving]
  - Off label use [Unknown]
  - Cholestasis [Recovering/Resolving]

NARRATIVE: CASE EVENT DATE: 20160622
